FAERS Safety Report 4475916-0 (Version None)
Quarter: 2004Q4

REPORT INFORMATION
  Report Type: 
  Country: None (occurrence: None)
  Receive Date: 20041012
  Receipt Date: 20040929
  Transmission Date: 20050328
  Serious: Yes (Other)
  Sender: FDA-Public Use
  Company Number: 2004072687

PATIENT
  Age: 50 Year
  Sex: Male

DRUGS (1)
  1. DIFLUCAN [Suspect]
     Indication: OESOPHAGEAL CANDIDIASIS
     Dosage: 400 MG (100 MG, 1 IN 1 D), INTRAVENOUS
     Route: 042
     Dates: start: 20040927, end: 20040927

REACTIONS (3)
  - ENCEPHALOPATHY [None]
  - HEPATIC ENZYME INCREASED [None]
  - HEPATIC LESION [None]
